FAERS Safety Report 13343276 (Version 1)
Quarter: 2017Q1

REPORT INFORMATION
  Report Type: Spontaneous
  Country: ES (occurrence: ES)
  Receive Date: 20170316
  Receipt Date: 20170316
  Transmission Date: 20170428
  Serious: Yes (Hospitalization, Other)
  Sender: FDA-Public Use
  Company Number: ES-BAYER-2017-044090

PATIENT
  Age: 79 Year
  Sex: Female
  Weight: 59.5 kg

DRUGS (3)
  1. ADIRO 100 MG [Suspect]
     Active Substance: ASPIRIN
     Indication: CARDIOVASCULAR EVENT PROPHYLAXIS
     Dosage: 1 DF, QD
     Dates: start: 20070629, end: 20150423
  2. FOLIC ACID. [Concomitant]
     Active Substance: FOLIC ACID
  3. MTX [Concomitant]
     Active Substance: METHOTREXATE SODIUM

REACTIONS (5)
  - Pneumonia [Recovered/Resolved]
  - Oral candidiasis [Recovered/Resolved]
  - Anaemia [Recovered/Resolved]
  - Productive cough [None]
  - Haemorrhoids [None]

NARRATIVE: CASE EVENT DATE: 20150407
